FAERS Safety Report 4985145-X (Version None)
Quarter: 2006Q2

REPORT INFORMATION
  Report Type: 
  Country: None (occurrence: None)
  Receive Date: 20060427
  Receipt Date: 20051025
  Transmission Date: 20061013
  Serious: Yes (Hospitalization)
  Sender: FDA-Public Use
  Company Number: US-MERCK-0510USA09304

PATIENT
  Age: 70 Year
  Sex: Female
  Weight: 70 kg

DRUGS (1)
  1. VIOXX [Suspect]
     Route: 048
     Dates: start: 20000101, end: 20020401

REACTIONS (14)
  - ANAEMIA [None]
  - BACTERIA STOOL IDENTIFIED [None]
  - CHEILITIS [None]
  - CHEST X-RAY ABNORMAL [None]
  - CRANIOTOMY [None]
  - DECUBITUS ULCER [None]
  - DIARRHOEA [None]
  - DYSPHAGIA [None]
  - ERYTHEMA [None]
  - HAEMORRHAGIC INFARCTION [None]
  - HALLUCINATION, AUDITORY [None]
  - HYPERGLYCAEMIA [None]
  - SYNCOPE [None]
  - URINE ANALYSIS ABNORMAL [None]
